FAERS Safety Report 16475530 (Version 1)
Quarter: 2019Q2

REPORT INFORMATION
  Report Type: Spontaneous
  Country: ES (occurrence: ES)
  Receive Date: 20190625
  Receipt Date: 20190625
  Transmission Date: 20190711
  Serious: Yes (Hospitalization)
  Sender: FDA-Public Use
  Company Number: ES-BAYER-2019-119619

PATIENT
  Age: 79 Year
  Sex: Male

DRUGS (14)
  1. ACETYLCYSTEINE. [Concomitant]
     Active Substance: ACETYLCYSTEINE
  2. FENTANYL. [Concomitant]
     Active Substance: FENTANYL
     Dosage: 12 ?G, Q72HR
  3. FUROSEMIDE. [Concomitant]
     Active Substance: FUROSEMIDE
     Dosage: 40 MG, QD
  4. ALOPURINOL [Concomitant]
     Active Substance: ALLOPURINOL
     Dosage: 100 MG, QD
  5. MASTICAL D [Concomitant]
     Dosage: 1 DF, QD
  6. XOFIGO [Suspect]
     Active Substance: RADIUM RA-223 DICHLORIDE
     Indication: HORMONE-REFRACTORY PROSTATE CANCER
     Dosage: UNK
  7. XOFIGO [Suspect]
     Active Substance: RADIUM RA-223 DICHLORIDE
     Indication: HORMONE-REFRACTORY PROSTATE CANCER
     Dosage: UNK
  8. OXYGENOR [Concomitant]
  9. XOFIGO [Suspect]
     Active Substance: RADIUM RA-223 DICHLORIDE
     Indication: HORMONE-REFRACTORY PROSTATE CANCER
     Dosage: UNK
  10. OMEPRAZOLE. [Concomitant]
     Active Substance: OMEPRAZOLE
     Dosage: 20 MG, QD
  11. XOFIGO [Suspect]
     Active Substance: RADIUM RA-223 DICHLORIDE
     Indication: HORMONE-REFRACTORY PROSTATE CANCER
     Dosage: UNK
     Dates: start: 201901, end: 20190612
  12. XOFIGO [Suspect]
     Active Substance: RADIUM RA-223 DICHLORIDE
     Indication: HORMONE-REFRACTORY PROSTATE CANCER
     Dosage: UNK
  13. THEO-DUR [Concomitant]
     Active Substance: THEOPHYLLINE ANHYDROUS
     Dosage: 200 MG, QD
  14. XOFIGO [Suspect]
     Active Substance: RADIUM RA-223 DICHLORIDE
     Indication: HORMONE-REFRACTORY PROSTATE CANCER
     Dosage: UNK
     Dates: end: 20190612

REACTIONS (2)
  - Chronic obstructive pulmonary disease [None]
  - Respiratory tract infection [None]
